FAERS Safety Report 5390071-0 (Version None)
Quarter: 2007Q3

REPORT INFORMATION
  Report Type: 
  Country: None (occurrence: None)
  Receive Date: 20070718
  Receipt Date: 20070710
  Transmission Date: 20080115
  Serious: Yes (Life-Threatening, Hospitalization, Disabling)
  Sender: FDA-Public Use
  Company Number: A0649336A

PATIENT
  Age: 58 Year
  Sex: Female
  Weight: 91.4 kg

DRUGS (6)
  1. AVANDIA [Suspect]
     Dosage: 8MG PER DAY
     Route: 048
     Dates: start: 20040101, end: 20070401
  2. METFORMIN HCL [Concomitant]
     Dosage: 1000MG TWICE PER DAY
     Route: 048
     Dates: start: 20030101, end: 20070401
  3. ADVAIR DISKUS 100/50 [Concomitant]
  4. VENTOLIN [Concomitant]
  5. PARIET [Concomitant]
     Dosage: 20MG PER DAY
     Dates: start: 20060101
  6. ELAVIL [Concomitant]
     Dosage: 25MG AT NIGHT
     Dates: start: 20030101

REACTIONS (14)
  - ABDOMINAL DISTENSION [None]
  - CARDIAC FAILURE CONGESTIVE [None]
  - CELLULITIS [None]
  - CHEST DISCOMFORT [None]
  - DISCOMFORT [None]
  - DYSPNOEA [None]
  - DYSPNOEA EXERTIONAL [None]
  - GENERAL PHYSICAL HEALTH DETERIORATION [None]
  - HYPOXIA [None]
  - OEDEMA PERIPHERAL [None]
  - ORGAN FAILURE [None]
  - ORTHOPNOEA [None]
  - PAIN [None]
  - SWELLING [None]
